FAERS Safety Report 7851480-0 (Version None)
Quarter: 2011Q4

REPORT INFORMATION
  Report Type: 
  Country: None (occurrence: None)
  Receive Date: 20111021
  Receipt Date: 20111011
  Transmission Date: 20120403
  Serious: Yes (Other)
  Sender: FDA-Public Use
  Company Number: 2011ES0243

PATIENT
  Age: 4 Year
  Sex: Male

DRUGS (5)
  1. VITAMIN D [Concomitant]
  2. OMEPRAZOLE [Concomitant]
  3. PREDNISONE [Concomitant]
  4. KINERET [Suspect]
     Indication: JUVENILE ARTHRITIS
     Dosage: 50 MG (50 MG, 1 IN 1 D) SUBCUTANEOUS
     Route: 058
     Dates: start: 20110309, end: 20110405
  5. CALCIUM [Concomitant]

REACTIONS (2)
  - ALANINE AMINOTRANSFERASE INCREASED [None]
  - ASPARTATE AMINOTRANSFERASE INCREASED [None]
